FAERS Safety Report 23628322 (Version 4)
Quarter: 2024Q2

REPORT INFORMATION
  Report Type: Spontaneous
  Country: AR (occurrence: AR)
  Receive Date: 20240313
  Receipt Date: 20240429
  Transmission Date: 20240716
  Serious: No
  Sender: FDA-Public Use
  Company Number: AR-PFIZER INC-PV202400025341

PATIENT
  Age: 12 Year
  Sex: Male

DRUGS (1)
  1. GENOTROPIN [Suspect]
     Active Substance: SOMATROPIN
     Indication: Short stature
     Dosage: 1.5 TO 2 MG, 6 TIMES PER WEEK
     Dates: start: 20171129

REACTIONS (4)
  - Poor quality device used [Unknown]
  - Device information output issue [Unknown]
  - Device leakage [Unknown]
  - Drug dose omission by device [Unknown]

NARRATIVE: CASE EVENT DATE: 20240220
